FAERS Safety Report 19259465 (Version 2)
Quarter: 2021Q2

REPORT INFORMATION
  Report Type: Other
  Country: US (occurrence: US)
  Receive Date: 20210514
  Receipt Date: 20210524
  Transmission Date: 20210717
  Serious: Yes (Death)
  Sender: FDA-Public Use
  Company Number: US-DEXPHARM-20210663

PATIENT
  Sex: Female

DRUGS (12)
  1. DOXORUBICIN [Suspect]
     Active Substance: DOXORUBICIN
  2. VINCRISTINE [Suspect]
     Active Substance: VINCRISTINE
  3. DEXAMETHASONE. [Suspect]
     Active Substance: DEXAMETHASONE
  4. ETOPOSIDE. [Suspect]
     Active Substance: ETOPOSIDE
  5. CYTARABINE. [Suspect]
     Active Substance: CYTARABINE
  6. RITUXIMAB. [Concomitant]
     Active Substance: RITUXIMAB
  7. FLUDARABINE [Suspect]
     Active Substance: FLUDARABINE PHOSPHATE
  8. CYCLOPHOSPHAMIDE. [Suspect]
     Active Substance: CYCLOPHOSPHAMIDE
  9. INOTUZUMAB?OZOGAMICIN [Suspect]
     Active Substance: INOTUZUMAB OZOGAMICIN
  10. PREDNISONE. [Suspect]
     Active Substance: PREDNISONE
  11. METHOTREXATE. [Suspect]
     Active Substance: METHOTREXATE
  12. AXICABTAGENE CILOLEUCEL [Suspect]
     Active Substance: AXICABTAGENE CILOLEUCEL

REACTIONS (3)
  - Cytokine release syndrome [Fatal]
  - Drug interaction [Unknown]
  - Leukoencephalopathy [Fatal]
